FAERS Safety Report 18977869 (Version 1)
Quarter: 2021Q1

REPORT INFORMATION
  Report Type: Report from Study
  Country: CA (occurrence: CA)
  Receive Date: 20210306
  Receipt Date: 20210306
  Transmission Date: 20210420
  Serious: Yes (Other)
  Sender: FDA-Public Use
  Company Number: NVSC2021CA051346

PATIENT
  Sex: Female

DRUGS (6)
  1. RANITIDINE. [Suspect]
     Active Substance: RANITIDINE
     Indication: CHRONIC SPONTANEOUS URTICARIA
     Dosage: 300 MG, QD
     Route: 048
     Dates: start: 201812
  2. HYDREA [Concomitant]
     Active Substance: HYDROXYUREA
     Indication: CHRONIC SPONTANEOUS URTICARIA
     Dosage: 2 DF, QD
     Route: 048
     Dates: start: 201812
  3. ASPIRIN. [Concomitant]
     Active Substance: ASPIRIN
     Indication: CHRONIC SPONTANEOUS URTICARIA
     Dosage: 80 MG, QD
     Route: 048
     Dates: start: 2018
  4. VITAMIN B12 [Suspect]
     Active Substance: CYANOCOBALAMIN
     Indication: CHRONIC SPONTANEOUS URTICARIA
     Dosage: 1200 MG, QD
     Route: 048
     Dates: start: 201812
  5. SYNTHROID [Concomitant]
     Active Substance: LEVOTHYROXINE SODIUM
     Indication: CHRONIC SPONTANEOUS URTICARIA
     Dosage: 125 MG, QD
     Route: 048
     Dates: start: 2008
  6. VITAMIN D [Concomitant]
     Active Substance: VITAMIN D NOS
     Indication: CHRONIC SPONTANEOUS URTICARIA
     Dosage: 1 DF
     Route: 048
     Dates: start: 201812

REACTIONS (2)
  - Anaphylactic reaction [Unknown]
  - Off label use [Unknown]
